FAERS Safety Report 11487223 (Version 4)
Quarter: 2016Q1

REPORT INFORMATION
  Report Type: Spontaneous
  Country: US (occurrence: US)
  Receive Date: 20150910
  Receipt Date: 20160114
  Transmission Date: 20160525
  Serious: No
  Sender: FDA-Public Use
  Company Number: US-PFIZER INC-2015299038

PATIENT
  Sex: Male

DRUGS (2)
  1. EFFEXOR [Suspect]
     Active Substance: VENLAFAXINE HYDROCHLORIDE
     Dosage: 75 MG, DAILY (PER DAY)
  2. EFFEXOR [Suspect]
     Active Substance: VENLAFAXINE HYDROCHLORIDE
     Indication: DEPRESSION
     Dosage: UNK
     Dates: end: 2013

REACTIONS (7)
  - Amnesia [Recovering/Resolving]
  - Derealisation [Unknown]
  - Personality change [Unknown]
  - Depression [Not Recovered/Not Resolved]
  - Lethargy [Unknown]
  - Anxiety [Unknown]
  - Sexual dysfunction [Unknown]
